FAERS Safety Report 19777668 (Version 1)
Quarter: 2021Q3

REPORT INFORMATION
  Report Type: Spontaneous
  Country: US (occurrence: US)
  Receive Date: 20210902
  Receipt Date: 20210902
  Transmission Date: 20211014
  Serious: No
  Sender: FDA-Public Use
  Company Number: US-ORGANON-O2108USA001594

PATIENT
  Age: 66 Year
  Sex: Female

DRUGS (13)
  1. FINASTERIDE. [Suspect]
     Active Substance: FINASTERIDE
     Indication: ALOPECIA
     Dosage: 1 MILLIGRAM, QD
     Route: 048
     Dates: start: 202010, end: 202101
  2. ARMOUR THYROID [Suspect]
     Active Substance: THYROID, PORCINE
     Indication: HYPOTHYROIDISM
     Dosage: 30 MILLIGRAM (1 TABLET), QD
     Route: 048
     Dates: start: 202105
  3. NP THYROID [Suspect]
     Active Substance: LEVOTHYROXINE\LIOTHYRONINE
     Dosage: 30 MILLIGRAM (1 TABLET), QD
     Route: 048
     Dates: start: 20201220
  4. NP THYROID [Suspect]
     Active Substance: LEVOTHYROXINE\LIOTHYRONINE
     Dosage: 30 MILLIGRAM (1 TABLET), QD
     Route: 048
     Dates: start: 20210320
  5. LEVOTHYROXINE. [Suspect]
     Active Substance: LEVOTHYROXINE
     Dosage: 100 MICROGRAM
     Dates: start: 20210510
  6. LEVOTHYROXINE. [Suspect]
     Active Substance: LEVOTHYROXINE
     Dosage: 100 MICROGRAM
     Dates: start: 20200920
  7. LEVOTHYROXINE. [Suspect]
     Active Substance: LEVOTHYROXINE
     Dosage: 100 MICROGRAM
     Dates: start: 20201220
  8. NP THYROID [Suspect]
     Active Substance: LEVOTHYROXINE\LIOTHYRONINE
     Indication: HYPOTHYROIDISM
     Dosage: 30 MILLIGRAM (1 TABLET), QD
     Route: 048
     Dates: start: 20200920
  9. FINASTERIDE. [Suspect]
     Active Substance: FINASTERIDE
     Dosage: 2 MILLIGRAM, QD
     Route: 048
     Dates: start: 2021, end: 2021
  10. FINASTERIDE. [Suspect]
     Active Substance: FINASTERIDE
     Dosage: 5 MILLIGRAM, QD
     Route: 048
     Dates: start: 2021
  11. NP THYROID [Suspect]
     Active Substance: LEVOTHYROXINE\LIOTHYRONINE
     Dosage: 30 MILLIGRAM (1 TABLET), QD
     Route: 048
     Dates: start: 20210510, end: 202105
  12. LEVOTHYROXINE. [Suspect]
     Active Substance: LEVOTHYROXINE
     Dosage: 100 MICROGRAM
     Dates: start: 20210320
  13. METOPROLOL. [Concomitant]
     Active Substance: METOPROLOL
     Dosage: 25 MILLIGRAM (1 TABLET), QD
     Route: 048

REACTIONS (2)
  - Product use issue [Unknown]
  - Drug ineffective [Unknown]

NARRATIVE: CASE EVENT DATE: 202010
